FAERS Safety Report 11934219 (Version 1)
Quarter: 2016Q1

REPORT INFORMATION
  Report Type: Spontaneous
  Country: US (occurrence: None)
  Receive Date: 20160120
  Receipt Date: 20160120
  Transmission Date: 20160526
  Serious: Yes (Hospitalization, Other)
  Sender: FDA-Public Use
  Company Number: None

PATIENT
  Age: 72 Year
  Sex: Male
  Weight: 65.77 kg

DRUGS (8)
  1. PROBIOTICS [Concomitant]
     Active Substance: PROBIOTICS NOS
  2. CATAPRES [Concomitant]
     Active Substance: CLONIDINE HYDROCHLORIDE
  3. INNER-ECO COCONUT WATER [Concomitant]
  4. CLONIDINE. [Concomitant]
     Active Substance: CLONIDINE
  5. LOPRESSOR (DISCONTINUED) [Concomitant]
  6. PEPCID [Concomitant]
     Active Substance: FAMOTIDINE
  7. KEPPRA [Suspect]
     Active Substance: LEVETIRACETAM
     Indication: CONVULSION PROPHYLAXIS
     Dosage: 1 TWICE DAILY, DIRECTLY INTO STOMACH .THROUGH PEG TUBE....
  8. COUNTRY LIFE LIQUID VITAMINS [Concomitant]

REACTIONS (10)
  - Anxiety [None]
  - Crying [None]
  - Fatigue [None]
  - Mood altered [None]
  - Hallucination [None]
  - Apathy [None]
  - Personality change [None]
  - Affect lability [None]
  - Depersonalisation/derealisation disorder [None]
  - Asthenia [None]

NARRATIVE: CASE EVENT DATE: 20151119
